FAERS Safety Report 19236614 (Version 1)
Quarter: 2021Q2

REPORT INFORMATION
  Report Type: Spontaneous
  Country: US (occurrence: US)
  Receive Date: 20210507
  Receipt Date: 20210507
  Transmission Date: 20210717
  Serious: Yes (Hospitalization)
  Sender: FDA-Public Use
  Company Number: None

PATIENT
  Age: 57 Year
  Sex: Female

DRUGS (1)
  1. TADALAFIL TAB 20 MG A2 [Suspect]
     Active Substance: TADALAFIL
     Route: 048
     Dates: start: 20171017

REACTIONS (2)
  - Pneumonia [None]
  - Ankle fracture [None]

NARRATIVE: CASE EVENT DATE: 20210322
